FAERS Safety Report 8798051 (Version 2)
Quarter: 2015Q1

REPORT INFORMATION
  Report Type: Report from Study
  Country: US (occurrence: US)
  Receive Date: 20120919
  Receipt Date: 20150321
  Transmission Date: 20150721
  Serious: Yes (Death)
  Sender: FDA-Public Use
  Company Number: US-ROCHE-1122624

PATIENT
  Sex: Female

DRUGS (11)
  1. DEXAMETHASONE. [Concomitant]
     Active Substance: DEXAMETHASONE
     Route: 042
  2. FILGRASTIM [Concomitant]
     Active Substance: FILGRASTIM
     Route: 065
  3. ANZEMET [Concomitant]
     Active Substance: DOLASETRON MESYLATE
     Route: 042
  4. LEVAQUIN [Concomitant]
     Active Substance: LEVOFLOXACIN
  5. NAVELBINE [Concomitant]
     Active Substance: VINORELBINE TARTRATE
     Route: 042
  6. TYLENOL [Concomitant]
     Active Substance: ACETAMINOPHEN
  7. LEVOXYL [Concomitant]
     Active Substance: LEVOTHYROXINE SODIUM
  8. PREMARIN [Concomitant]
     Active Substance: ESTROGENS, CONJUGATED
  9. GEMZAR [Concomitant]
     Active Substance: GEMCITABINE HYDROCHLORIDE
     Route: 042
  10. AVASTIN [Suspect]
     Active Substance: BEVACIZUMAB
     Indication: MALIGNANT RESPIRATORY TRACT NEOPLASM
     Route: 042
  11. ATIVAN [Concomitant]
     Active Substance: LORAZEPAM

REACTIONS (12)
  - Headache [Unknown]
  - Vomiting [Unknown]
  - Rhinorrhoea [Unknown]
  - Nausea [Unknown]
  - Micturition urgency [Unknown]
  - Cough [Unknown]
  - Back pain [Unknown]
  - Muscle spasms [Unknown]
  - Death [Fatal]
  - Fatigue [Unknown]
  - Hot flush [Unknown]
  - Anxiety [Unknown]
